FAERS Safety Report 6710569-X (Version None)
Quarter: 2010Q2

REPORT INFORMATION
  Report Type: 
  Country: None (occurrence: None)
  Receive Date: 20100504
  Receipt Date: 20100329
  Transmission Date: 20101027
  Serious: No
  Sender: FDA-Public Use
  Company Number: US-BAYER-201018473NA

PATIENT
  Age: 57 Year
  Sex: Female
  Weight: 59 kg

DRUGS (2)
  1. ULTRAVIST 150 [Suspect]
     Indication: COMPUTERISED TOMOGRAM THORAX
     Dosage: TOTAL DAILY DOSE: 90 ML  UNIT DOSE: 200 ML
     Route: 042
     Dates: start: 20100329, end: 20100329
  2. MAO INHIBITORS [Concomitant]

REACTIONS (2)
  - NAUSEA [None]
  - VOMITING [None]
